FAERS Safety Report 5101285-9 (Version None)
Quarter: 2006Q3

REPORT INFORMATION
  Report Type: 
  Country: None (occurrence: None)
  Receive Date: 20060906
  Receipt Date: 20060822
  Transmission Date: 20061208
  Serious: Yes (Other)
  Sender: FDA-Public Use
  Company Number: 230520K06CAN

PATIENT
  Sex: Female

DRUGS (8)
  1. REBIF [Suspect]
     Indication: MULTIPLE SCLEROSIS
     Dates: start: 20010105
  2. ACCURETIC [Concomitant]
  3. AMANTADINE HCL [Concomitant]
  4. TEGRETOL [Concomitant]
  5. BACLOFEN [Concomitant]
  6. LEVODOPA (LEVODOPA) [Concomitant]
  7. ALL OTHER THERAPEUTIC PRODUCTS [Concomitant]
  8. DIAZEPAM [Concomitant]

REACTIONS (4)
  - ABASIA [None]
  - COLOSTOMY [None]
  - HYPOAESTHESIA [None]
  - MULTIPLE SCLEROSIS RELAPSE [None]
